FAERS Safety Report 8567922-1 (Version None)
Quarter: 2012Q3

REPORT INFORMATION
  Report Type: 
  Country: None (occurrence: None)
  Receive Date: 20120803
  Receipt Date: 20110923
  Transmission Date: 20120928
  Serious: No
  Sender: FDA-Public Use
  Company Number: US-ABBOTT-11P-163-0857117-00

PATIENT
  Sex: Female
  Weight: 70.824 kg

DRUGS (8)
  1. VYTORIN [Concomitant]
     Indication: BLOOD CHOLESTEROL
  2. HYDROXYCHLOROTHIAZIDE [Concomitant]
     Indication: HYPERTENSION
  3. IBUPROFEN [Concomitant]
     Indication: PROPHYLAXIS
  4. SYNTHROID [Concomitant]
     Indication: HYPOTHYROIDISM
  5. CLARITIN [Concomitant]
     Indication: SEASONAL ALLERGY
  6. LISINOPRIL [Concomitant]
     Indication: HYPERTENSION
  7. NIASPAN [Suspect]
     Indication: BLOOD CHOLESTEROL
     Route: 048
     Dates: start: 20090101
  8. LOVAZA [Concomitant]
     Indication: BLOOD CHOLESTEROL

REACTIONS (4)
  - FLUSHING [None]
  - RASH [None]
  - CONTUSION [None]
  - BURNING SENSATION [None]
